FAERS Safety Report 7949109-6 (Version None)
Quarter: 2011Q4

REPORT INFORMATION
  Report Type: 
  Country: None (occurrence: None)
  Receive Date: 20111130
  Receipt Date: 20111122
  Transmission Date: 20120403
  Serious: Yes (Other)
  Sender: FDA-Public Use
  Company Number: CA-BAXTER-2011BH037361

PATIENT

DRUGS (2)
  1. DEXTROSE [Concomitant]
     Indication: ROUTINE HEALTH MAINTENANCE
     Route: 042
  2. SODIUM CHLORIDE 0.9% IN PLASTIC CONTAINER [Suspect]
     Indication: ROUTINE HEALTH MAINTENANCE
     Route: 042

REACTIONS (1)
  - HYPONATRAEMIA [None]
